FAERS Safety Report 14922862 (Version 1)
Quarter: 2018Q2

REPORT INFORMATION
  Report Type: Spontaneous
  Country: FR (occurrence: FR)
  Receive Date: 20180522
  Receipt Date: 20180522
  Transmission Date: 20180711
  Serious: Yes (Other)
  Sender: FDA-Public Use
  Company Number: FR-MERCK KGAA-2048222

PATIENT

DRUGS (1)
  1. NOVOTHYROX [Suspect]
     Active Substance: LEVOTHYROXINE SODIUM
     Indication: PRODUCT USED FOR UNKNOWN INDICATION

REACTIONS (20)
  - Angina pectoris [None]
  - Blood glucose increased [None]
  - Fatigue [None]
  - Asthenia [None]
  - Abdominal pain [None]
  - Feeling abnormal [None]
  - Emotional distress [None]
  - Alopecia [None]
  - Social avoidant behaviour [None]
  - Red blood cell sedimentation rate increased [None]
  - Mean cell haemoglobin decreased [None]
  - Headache [None]
  - Abdominal pain upper [None]
  - Mood altered [None]
  - Irritability [None]
  - Diarrhoea [None]
  - Colitis [None]
  - Dizziness [None]
  - Blood thyroid stimulating hormone increased [Not Recovered/Not Resolved]
  - Mean cell volume decreased [None]

NARRATIVE: CASE EVENT DATE: 20170523
